FAERS Safety Report 4546465-6 (Version None)
Quarter: 2005Q1

REPORT INFORMATION
  Report Type: 
  Country: None (occurrence: None)
  Receive Date: 20050103
  Receipt Date: 20041214
  Transmission Date: 20050727
  Serious: Yes (Hospitalization)
  Sender: FDA-Public Use
  Company Number: FR_041205420

PATIENT
  Age: 3 Year
  Sex: Male
  Weight: 21 kg

DRUGS (2)
  1. VANCOMYCIN [Suspect]
     Indication: MENINGITIS BACTERIAL
     Dosage: 400 MG OTHER
     Route: 050
     Dates: start: 20041108
  2. CALFORAN (CEFOTAXINE SODIUM) [Concomitant]

REACTIONS (2)
  - DERMATITIS EXFOLIATIVE [None]
  - RED MAN SYNDROME [None]
